FAERS Safety Report 23873177 (Version 1)
Quarter: 2024Q2

REPORT INFORMATION
  Report Type: Spontaneous
  Country: US (occurrence: None)
  Receive Date: 20240517
  Receipt Date: 20240517
  Transmission Date: 20240716
  Serious: Yes (Hospitalization)
  Sender: FDA-Public Use
  Company Number: None

PATIENT
  Age: 55 Year
  Sex: Female

DRUGS (9)
  1. AMBRISENTAN [Suspect]
     Active Substance: AMBRISENTAN
     Indication: Pulmonary hypertension
     Dosage: FREQUENCY : DAILY;?
     Route: 048
     Dates: start: 20141010
  2. ADEMPAS [Concomitant]
     Active Substance: RIOCIGUAT
  3. TREPROSTINIL [Concomitant]
     Active Substance: TREPROSTINIL
  4. BUMETANIDE [Concomitant]
     Active Substance: BUMETANIDE
  5. POTASSIUM CHLORIDE [Concomitant]
     Active Substance: POTASSIUM CHLORIDE
  6. HUMULIN N [Concomitant]
     Active Substance: INSULIN HUMAN
  7. GLIPIZIDE [Concomitant]
     Active Substance: GLIPIZIDE
  8. SIMVASTATIN [Concomitant]
     Active Substance: SIMVASTATIN
  9. METFORMIN [Concomitant]
     Active Substance: METFORMIN HYDROCHLORIDE

REACTIONS (4)
  - Acute respiratory failure [None]
  - Respiratory failure [None]
  - Acute pulmonary oedema [None]
  - Sepsis [None]

NARRATIVE: CASE EVENT DATE: 20240501
